FAERS Safety Report 8493397-7 (Version None)
Quarter: 2012Q3

REPORT INFORMATION
  Report Type: 
  Country: None (occurrence: None)
  Receive Date: 20120706
  Receipt Date: 20120622
  Transmission Date: 20120928
  Serious: Yes (Other)
  Sender: FDA-Public Use
  Company Number: US-FRI-1000036666

PATIENT
  Age: 75 Year
  Sex: Female

DRUGS (4)
  1. THYROID TAB [Suspect]
     Indication: HYPOTHYROIDISM
     Dosage: 90 MG
     Route: 048
     Dates: start: 20100101, end: 20120508
  2. LEVOTHYROXINE SODIUM [Concomitant]
     Indication: HYPOTHYROIDISM
  3. MULTI-VITAMINS [Concomitant]
  4. LIOTHYRONINE SODIUM [Concomitant]
     Indication: HYPOTHYROIDISM

REACTIONS (4)
  - BLOOD THYROID STIMULATING HORMONE INCREASED [None]
  - FALL [None]
  - CLAVICLE FRACTURE [None]
  - ATRIAL FIBRILLATION [None]
